FAERS Safety Report 21363530 (Version 1)
Quarter: 2022Q3

REPORT INFORMATION
  Report Type: Spontaneous
  Country: FR (occurrence: FR)
  Receive Date: 20220922
  Receipt Date: 20220922
  Transmission Date: 20221027
  Serious: Yes (Other)
  Sender: FDA-Public Use
  Company Number: FR-CELLTRION INC.-2016FR011460

PATIENT

DRUGS (4)
  1. INFLECTRA [Suspect]
     Active Substance: INFLIXIMAB-DYYB
     Indication: Ankylosing spondylitis
     Dosage: 6 MG/KG, 1 SINGLE DOSE
     Route: 042
     Dates: start: 20160106, end: 20160106
  2. INFLIXIMAB [Suspect]
     Active Substance: INFLIXIMAB
     Indication: Ankylosing spondylitis
     Dosage: 3 MG/KG, 1INJECTION PER 6WEEKS INCREASING TO7 MG/KG
     Dates: start: 20111101, end: 20150101
  3. INFLIXIMAB [Suspect]
     Active Substance: INFLIXIMAB
     Dosage: 3 MG/KG, UNK
     Dates: start: 20160226
  4. METHOTREXATE [Suspect]
     Active Substance: METHOTREXATE
     Indication: Ankylosing spondylitis
     Dosage: 12.5 MG, 1 WEEK
     Route: 058
     Dates: start: 20100101

REACTIONS (7)
  - Allodynia [Unknown]
  - Ear pain [Recovering/Resolving]
  - Deafness [Unknown]
  - Hyperaesthesia [Unknown]
  - Lymphadenopathy [Unknown]
  - Sinusitis [Recovered/Resolved]
  - Herpes zoster [Recovering/Resolving]

NARRATIVE: CASE EVENT DATE: 20160101
